FAERS Safety Report 4622838-8 (Version None)
Quarter: 2005Q1

REPORT INFORMATION
  Report Type: 
  Country: None (occurrence: None)
  Receive Date: 20050330
  Receipt Date: 20050118
  Transmission Date: 20050727
  Serious: Yes (Hospitalization, Disabling, Other)
  Sender: FDA-Public Use
  Company Number: US-GLAXOSMITHKLINE-A0541603A

PATIENT
  Age: 68 Year
  Sex: Female
  Weight: 52.7 kg

DRUGS (16)
  1. WELLBUTRIN XL [Suspect]
     Indication: DRUG USE FOR UNKNOWN INDICATION
     Dosage: 300MG PER DAY
     Route: 048
  2. PERCOCET [Concomitant]
  3. FOSAMAX [Concomitant]
     Dosage: 70MG WEEKLY
  4. ALLEGRA [Concomitant]
     Dosage: 180MG PER DAY
  5. BEXTRA [Concomitant]
     Dosage: 20MG PER DAY
  6. NU-IRON [Concomitant]
     Dosage: 150MG PER DAY
  7. MAGNESIUM OXIDE [Concomitant]
     Dosage: 400MG THREE TIMES PER DAY
  8. DUONEB [Concomitant]
  9. COMBIVENT [Concomitant]
  10. ADVAIR [Concomitant]
     Dosage: 1PUFF TWICE PER DAY
  11. TIAZAC [Concomitant]
     Dosage: 300MG PER DAY
  12. LOTENSIN [Concomitant]
     Dosage: 10MG PER DAY
  13. BETHANECOL [Concomitant]
     Dosage: 50MG FOUR TIMES PER DAY
  14. EFFEXOR XR [Concomitant]
     Dosage: 150MG PER DAY
  15. SONATA [Concomitant]
     Dosage: 10MG AT NIGHT
  16. ACIPHEX [Concomitant]
     Dosage: 20MG PER DAY

REACTIONS (15)
  - ABDOMINAL PAIN [None]
  - ALANINE AMINOTRANSFERASE INCREASED [None]
  - ANOREXIA [None]
  - ASPARTATE AMINOTRANSFERASE INCREASED [None]
  - BLOOD ALKALINE PHOSPHATASE INCREASED [None]
  - DIARRHOEA [None]
  - ELECTROLYTE IMBALANCE [None]
  - ILEUS [None]
  - INTESTINAL PERFORATION [None]
  - LIVER FUNCTION TEST ABNORMAL [None]
  - NAUSEA [None]
  - PERITONITIS [None]
  - VOLVULUS OF BOWEL [None]
  - VOMITING [None]
  - WEIGHT DECREASED [None]
